FAERS Safety Report 5237683-2 (Version None)
Quarter: 2007Q1

REPORT INFORMATION
  Report Type: 
  Country: None (occurrence: None)
  Receive Date: 20070214
  Receipt Date: 20070130
  Transmission Date: 20070707
  Serious: Yes (Congenital Anomaly)
  Sender: FDA-Public Use
  Company Number: GB-ELI_LILLY_AND_COMPANY-GB200701006203

PATIENT

DRUGS (1)
  1. FLUOXETINE HYDROCHLORIDE [Suspect]
     Dosage: UNK, DAILY (1/D)
     Route: 064
     Dates: start: 20061001, end: 20061020

REACTIONS (2)
  - DRUG EXPOSURE DURING PREGNANCY [None]
  - GASTROSCHISIS [None]
